FAERS Safety Report 24786730 (Version 1)
Quarter: 2024Q4

REPORT INFORMATION
  Report Type: Spontaneous
  Country: CZ (occurrence: CZ)
  Receive Date: 20241230
  Receipt Date: 20241230
  Transmission Date: 20250115
  Serious: Yes (Hospitalization, Other)
  Sender: CELLTRION
  Company Number: CZ-CELLTRION INC.-2024CZ032726

PATIENT

DRUGS (1)
  1. INFLIXIMAB [Suspect]
     Active Substance: INFLIXIMAB
     Indication: Product used for unknown indication
     Dosage: UNK
     Route: 058
     Dates: end: 20241212

REACTIONS (3)
  - Bladder neoplasm [Unknown]
  - Haematuria [Unknown]
  - Infection [Unknown]

NARRATIVE: CASE EVENT DATE: 20241220
